FAERS Safety Report 5239226-6 (Version None)
Quarter: 2007Q1

REPORT INFORMATION
  Report Type: 
  Country: None (occurrence: None)
  Receive Date: 20061208
  Receipt Date: 20050606
  Transmission Date: 20070707
  Serious: Yes (Other)
  Sender: FDA-Public Use
  Company Number: 2005UW08725

PATIENT
  Age: 86 Year
  Sex: Male

DRUGS (2)
  1. CRESTOR [Suspect]
     Indication: BLOOD CHOLESTEROL INCREASED
  2. ASPIRIN [Concomitant]

REACTIONS (3)
  - DEMYELINATING POLYNEUROPATHY [None]
  - MUSCULAR WEAKNESS [None]
  - POLYNEUROPATHY [None]
